FAERS Safety Report 14692497 (Version 3)
Quarter: 2018Q2

REPORT INFORMATION
  Report Type: Spontaneous
  Country: US (occurrence: US)
  Receive Date: 20180329
  Receipt Date: 20180621
  Transmission Date: 20180711
  Serious: No
  Sender: FDA-Public Use
  Company Number: US-PFIZER INC-2018126403

PATIENT
  Age: 61 Year
  Sex: Male

DRUGS (1)
  1. METHOTREXATE SODIUM. [Suspect]
     Active Substance: METHOTREXATE SODIUM
     Dosage: UNK, WEEKLY (8/WEEK)

REACTIONS (8)
  - Joint swelling [Unknown]
  - Gait disturbance [Unknown]
  - Synovial cyst [Unknown]
  - Pain in extremity [Unknown]
  - Drug tolerance [Unknown]
  - Oedema peripheral [Unknown]
  - Arthralgia [Unknown]
  - Joint range of motion decreased [Unknown]
